FAERS Safety Report 22097541 (Version 1)
Quarter: 2023Q1

REPORT INFORMATION
  Report Type: Spontaneous
  Country: CN (occurrence: CN)
  Receive Date: 20230315
  Receipt Date: 20230315
  Transmission Date: 20230417
  Serious: Yes (Hospitalization, Other)
  Sender: FDA-Public Use
  Company Number: CN-drreddys-LIT/CHN/23/0162353

PATIENT
  Age: 70 Year
  Sex: Female

DRUGS (7)
  1. CLOPIDOGREL [Suspect]
     Active Substance: CLOPIDOGREL BISULFATE
     Indication: Atrial fibrillation
  2. CLOPIDOGREL [Suspect]
     Active Substance: CLOPIDOGREL BISULFATE
     Indication: Anticoagulant therapy
  3. RIVAROXABAN [Suspect]
     Active Substance: RIVAROXABAN
     Indication: Atrial fibrillation
     Route: 048
  4. RIVAROXABAN [Suspect]
     Active Substance: RIVAROXABAN
     Indication: Anticoagulant therapy
  5. AMIODARONE [Suspect]
     Active Substance: AMIODARONE
     Indication: Arrhythmia prophylaxis
  6. HEPARIN [Suspect]
     Active Substance: HEPARIN SODIUM
     Indication: Anticoagulant therapy
  7. HEPARIN [Suspect]
     Active Substance: HEPARIN SODIUM

REACTIONS (3)
  - Atrial fibrillation [Recovered/Resolved]
  - Mesenteric artery embolism [Recovered/Resolved]
  - Drug ineffective for unapproved indication [Unknown]
